FAERS Safety Report 4879687-5 (Version None)
Quarter: 2006Q1

REPORT INFORMATION
  Report Type: 
  Country: None (occurrence: None)
  Receive Date: 20060111
  Receipt Date: 20051227
  Transmission Date: 20060701
  Serious: Yes (Other)
  Sender: FDA-Public Use
  Company Number: 2005-BP-21815RO

PATIENT
  Age: 40 Year
  Sex: Female

DRUGS (5)
  1. AZATHIOPRINE [Suspect]
     Indication: SYSTEMIC LUPUS ERYTHEMATOSUS
     Dosage: 1-2 MG/KG DAY
     Dates: start: 20020901, end: 20040101
  2. AZATHIOPRINE [Suspect]
     Indication: SYSTEMIC LUPUS ERYTHEMATOSUS
     Dosage: 1-2 MG/KG DAY
     Dates: start: 19970601
  3. CYCLOPHOSPHAMIDE [Suspect]
     Indication: SYSTEMIC LUPUS ERYTHEMATOSUS
     Dosage: IV
     Route: 042
     Dates: start: 19970601, end: 19990601
  4. METHYLPREDNISOLONE [Suspect]
     Indication: SYSTEMIC LUPUS ERYTHEMATOSUS
     Dates: start: 20020101
  5. HYDROXCHLOROQUINE (HYDROXCHLOROQUINE) [Suspect]
     Indication: SYSTEMIC LUPUS ERYTHEMATOSUS

REACTIONS (10)
  - ARTHRITIS [None]
  - BLOOD DISORDER [None]
  - CUTANEOUS LUPUS ERYTHEMATOSUS [None]
  - HAEMATEMESIS [None]
  - HEPATIC ATROPHY [None]
  - HEPATOMEGALY [None]
  - PLEURISY [None]
  - PYREXIA [None]
  - VARICES OESOPHAGEAL [None]
  - VENOOCCLUSIVE LIVER DISEASE [None]
